FAERS Safety Report 10284543 (Version 2)
Quarter: 2014Q3

REPORT INFORMATION
  Report Type: Spontaneous
  Country: US (occurrence: None)
  Receive Date: 20140703
  Receipt Date: 20140708
  Transmission Date: 20150326
  Serious: Yes (Hospitalization, Other)
  Sender: FDA-Public Use
  Company Number: AUR-APL-2014-06968

PATIENT
  Age: 33 Year
  Sex: Female

DRUGS (5)
  1. METHADONE [Concomitant]
     Active Substance: METHADONE HYDROCHLORIDE
  2. DIPHENHYDRAMINE (DIPHENHYDRAMINE) [Concomitant]
     Active Substance: DIPHENHYDRAMINE
  3. LORAZEPAM (LORAZEPAM) [Concomitant]
     Active Substance: LORAZEPAM
  4. LEVETIRACETAM. [Suspect]
     Active Substance: LEVETIRACETAM
     Indication: CONVULSION
  5. HALOPERIDOL (HALOPERIDOL) [Concomitant]

REACTIONS (22)
  - Irritability [None]
  - Urinary tract infection [None]
  - Substance-induced psychotic disorder [None]
  - Paranoia [None]
  - Anticonvulsant drug level below therapeutic [None]
  - Treatment noncompliance [None]
  - Feeling abnormal [None]
  - Decreased interest [None]
  - Fatigue [None]
  - Aggression [None]
  - Hallucination, auditory [None]
  - Mental status changes [None]
  - Abnormal behaviour [None]
  - Agitation [None]
  - Memory impairment [None]
  - Scratch [None]
  - Poor quality sleep [None]
  - Flat affect [None]
  - Exposure during pregnancy [None]
  - Speech disorder [None]
  - Convulsion [None]
  - Disease recurrence [None]
